FAERS Safety Report 18953658 (Version 1)
Quarter: 2021Q1

REPORT INFORMATION
  Report Type: Spontaneous
  Country: US (occurrence: US)
  Receive Date: 20210301
  Receipt Date: 20210301
  Transmission Date: 20210420
  Serious: Yes (Death)
  Sender: FDA-Public Use
  Company Number: None

PATIENT
  Sex: Male

DRUGS (26)
  1. BISCAODYL [Concomitant]
  2. BUPROPION. [Concomitant]
     Active Substance: BUPROPION
  3. HALOPERIDOL. [Concomitant]
     Active Substance: HALOPERIDOL
  4. TEMAZEPAM. [Concomitant]
     Active Substance: TEMAZEPAM
  5. HYOSCYAMINE. [Concomitant]
     Active Substance: HYOSCYAMINE
  6. LEVOTHYROXIN [Concomitant]
     Active Substance: LEVOTHYROXINE
  7. SILDENAFIL. [Concomitant]
     Active Substance: SILDENAFIL
  8. LORAZEPAM. [Concomitant]
     Active Substance: LORAZEPAM
  9. METOPROL SUC ER [Concomitant]
     Active Substance: METOPROLOL SUCCINATE
  10. ESBRIET [Suspect]
     Active Substance: PIRFENIDONE
     Indication: IDIOPATHIC PULMONARY FIBROSIS
     Route: 048
     Dates: start: 20190411
  11. ALPRAZOLAM. [Concomitant]
     Active Substance: ALPRAZOLAM
  12. ACETAMIN [Concomitant]
     Active Substance: ACETAMINOPHEN
  13. DOXYCYL HYC [Concomitant]
  14. BUDESONIDE. [Concomitant]
     Active Substance: BUDESONIDE
  15. MORPHINE SUL [Concomitant]
     Active Substance: MORPHINE SULFATE
  16. PROCHLORPER [Concomitant]
  17. VITAMIN D [Concomitant]
     Active Substance: VITAMIN D NOS
  18. FUROSEMIDE. [Concomitant]
     Active Substance: FUROSEMIDE
  19. IPRATROPIUM/SOL ALBUTER [Concomitant]
  20. MAGNESIUM OX [Concomitant]
  21. AMLODIPINE [Concomitant]
     Active Substance: AMLODIPINE BESYLATE
  22. HYDROCHLOROT [Concomitant]
     Active Substance: HYDROCHLOROTHIAZIDE
  23. LOPERAMIDE [Concomitant]
     Active Substance: LOPERAMIDE
  24. POT CHLORIDE ER [Concomitant]
  25. PREDNISONE. [Concomitant]
     Active Substance: PREDNISONE
  26. SERTRALINE [Concomitant]
     Active Substance: SERTRALINE HYDROCHLORIDE

REACTIONS (1)
  - Death [None]
